FAERS Safety Report 11835463 (Version 1)
Quarter: 2015Q4

REPORT INFORMATION
  Report Type: Spontaneous
  Country: US (occurrence: US)
  Receive Date: 20151215
  Receipt Date: 20151215
  Transmission Date: 20160305
  Serious: No
  Sender: FDA-Public Use
  Company Number: US-HOSPIRA-2730017

PATIENT
  Sex: Female

DRUGS (2)
  1. LIDOCAINE HYDROCHLORIDE. [Suspect]
     Active Substance: LIDOCAINE HYDROCHLORIDE
     Indication: MEDICATION DILUTION
     Dosage: NOT REPORTED, NOT REPORTED
     Dates: start: 20150113
  2. CEFTRIAXONE SODIUM. [Suspect]
     Active Substance: CEFTRIAXONE SODIUM
     Indication: PRODUCT USED FOR UNKNOWN INDICATION
     Dosage: NOT REPORTED, NOT REPORTED
     Dates: start: 20150113

REACTIONS (3)
  - Heart rate increased [Recovering/Resolving]
  - Dyspnoea [Recovering/Resolving]
  - Dizziness [Recovering/Resolving]

NARRATIVE: CASE EVENT DATE: 20150113
